FAERS Safety Report 17891268 (Version 1)
Quarter: 2020Q2

REPORT INFORMATION
  Report Type: Spontaneous
  Country: US (occurrence: US)
  Receive Date: 20200612
  Receipt Date: 20200612
  Transmission Date: 20200714
  Serious: No
  Sender: FDA-Public Use
  Company Number: US-PERRIGO-19US011543

PATIENT
  Age: 30 Year
  Sex: Male
  Weight: 58.96 kg

DRUGS (1)
  1. MINOXIDIL. [Suspect]
     Active Substance: MINOXIDIL
     Indication: ALOPECIA
     Dosage: UNKNONW, BID
     Route: 061
     Dates: start: 20190909, end: 20190922

REACTIONS (13)
  - Headache [Recovered/Resolved]
  - Heart rate increased [Recovering/Resolving]
  - Flushing [Recovered/Resolved]
  - Head discomfort [Recovering/Resolving]
  - Condition aggravated [Not Recovered/Not Resolved]
  - Underdose [Recovered/Resolved]
  - Skin warm [Recovered/Resolved]
  - Product administered at inappropriate site [Recovered/Resolved]
  - Confusional state [Recovering/Resolving]
  - Mood swings [Recovering/Resolving]
  - Chest pain [Recovering/Resolving]
  - Paraesthesia [Recovering/Resolving]
  - Irritability [Recovering/Resolving]

NARRATIVE: CASE EVENT DATE: 201909
